FAERS Safety Report 21944293 (Version 1)
Quarter: 2023Q1

REPORT INFORMATION
  Report Type: Spontaneous
  Country: PL (occurrence: PL)
  Receive Date: 20230202
  Receipt Date: 20230202
  Transmission Date: 20230417
  Serious: Yes (Other)
  Sender: FDA-Public Use
  Company Number: PL-Accord-298440

PATIENT
  Age: 7 Year
  Sex: Female

DRUGS (20)
  1. METHOTREXATE [Suspect]
     Active Substance: METHOTREXATE
     Indication: B-cell lymphoma stage III
     Dosage: 15 MG ON DAY 1
     Route: 037
  2. CYTARABINE [Suspect]
     Active Substance: CYTARABINE
     Indication: B-cell lymphoma stage III
     Dosage: ON DAY 7
     Route: 037
  3. DOXORUBICIN [Suspect]
     Active Substance: DOXORUBICIN
     Indication: B-cell lymphoma stage III
     Dosage: ON DAY 2, 60 MG/M2/DAY IN 1HR
  4. VINCRISTINE [Suspect]
     Active Substance: VINCRISTINE
     Indication: B-cell lymphoma stage III
     Dosage: ON DAY 1
     Route: 042
  5. PREDNISONE [Suspect]
     Active Substance: PREDNISONE
     Indication: B-cell lymphoma stage III
     Dosage: OVER 15 MIN, FROM DAY 1-7, 60 MG/M2/DAY (DIVIDED INTO BID DOSES)
     Route: 048
  6. CYCLOPHOSPHAMIDE [Suspect]
     Active Substance: CYCLOPHOSPHAMIDE
     Indication: B-cell lymphoma stage III
     Dosage: ON DAY 1, OVER 15 MIN
  7. HYDROCORTISONE [Suspect]
     Active Substance: HYDROCORTISONE
     Indication: B-cell lymphoma stage III
     Dosage: 15 MG, ON DAY 1
  8. RITUXIMAB [Suspect]
     Active Substance: RITUXIMAB
     Indication: B-cell lymphoma stage III
     Dosage: ON DAY 1
  9. LEUCOVORIN [Suspect]
     Active Substance: LEUCOVORIN
     Indication: B-cell lymphoma stage III
     Dosage: ON DAY 2, 3 AND 4
     Route: 048
  10. METHOTREXATE [Suspect]
     Active Substance: METHOTREXATE
     Indication: B-cell lymphoma stage III
     Dosage: 1.0 G/M2 IN 500 ML/M2 DEXTROSE 5% AS INTRAVENOUS INFUSION ON DAY 1
  11. VINCRISTINE [Suspect]
     Active Substance: VINCRISTINE
     Indication: B-cell lymphoma stage III
     Dosage: ON DAY 1
     Route: 042
  12. PREDNISONE [Suspect]
     Active Substance: PREDNISONE
     Indication: B-cell lymphoma stage III
     Dosage: OVER 15 MIN, FROM DAY 1-6, 60 MG/M2/DAY (DIVIDED INTO BID DOSES)
     Route: 048
  13. CYCLOPHOSPHAMIDE [Suspect]
     Active Substance: CYCLOPHOSPHAMIDE
     Indication: B-cell lymphoma stage III
     Dosage: ON DAY 2, 3 AND 4, 200 (1ST CYCLE) AND 250 MG/M2 (2NDCYCLE) OVER 15 MIN
  14. METHOTREXATE [Suspect]
     Active Substance: METHOTREXATE
     Indication: B-cell lymphoma stage III
     Dosage: 15 MG ON DAY 6
     Route: 037
  15. RITUXIMAB [Suspect]
     Active Substance: RITUXIMAB
     Indication: B-cell lymphoma stage III
     Dosage: ON DAY 1
  16. METHOTREXATE [Suspect]
     Active Substance: METHOTREXATE
     Indication: B-cell lymphoma stage III
     Dosage: ON DAY 1, 1.0 G/M2 IN 500 ML/M2 DEXTROSE 5%
     Route: 037
  17. LEUCOVORIN [Suspect]
     Active Substance: LEUCOVORIN
     Indication: B-cell lymphoma stage III
     Dosage: ON DAY 2, 3 AND 4
     Route: 048
  18. METHOTREXATE [Suspect]
     Active Substance: METHOTREXATE
     Indication: B-cell lymphoma stage III
     Dosage: 15 MG ON DAY 2
     Route: 037
  19. HYDROCORTISONE [Suspect]
     Active Substance: HYDROCORTISONE
     Indication: B-cell lymphoma stage III
     Dosage: 15 MG, ON DAY 2 AND DAY 7
     Route: 037
  20. CYTARABINE [Suspect]
     Active Substance: CYTARABINE
     Indication: B-cell lymphoma stage III
     Dosage: ON DAY 4, 100 MG/M2 IN 1000 ML/M2 DEXTROSE SALINE OVER 24 H

REACTIONS (8)
  - Leukopenia [Unknown]
  - Febrile neutropenia [Unknown]
  - Urinary tract infection [Unknown]
  - Oral disorder [Unknown]
  - Thrombocytopenia [Unknown]
  - Anaemia [Unknown]
  - Hypertension [Unknown]
  - Off label use [Unknown]
